FAERS Safety Report 4820633-8 (Version None)
Quarter: 2005Q4

REPORT INFORMATION
  Report Type: 
  Country: None (occurrence: None)
  Receive Date: 20051104
  Receipt Date: 20051029
  Transmission Date: 20060501
  Serious: Yes (Hospitalization, Other)
  Sender: FDA-Public Use
  Company Number: 420063

PATIENT
  Age: 13 Year
  Sex: Female

DRUGS (3)
  1. CEFTAZIDIME [Suspect]
     Indication: CYSTIC FIBROSIS
     Dosage: 2000MG PER DAY
     Route: 042
  2. GENTAMICIN [Suspect]
     Indication: CYSTIC FIBROSIS
     Dosage: 10MGK PER DAY
     Route: 042
  3. HEMODIALYSIS [Concomitant]

REACTIONS (5)
  - BLOOD CREATININE INCREASED [None]
  - OEDEMA [None]
  - PROTEINURIA [None]
  - RENAL FAILURE ACUTE [None]
  - RENAL TUBULAR NECROSIS [None]
